FAERS Safety Report 8064260-0 (Version None)
Quarter: 2011Q4

REPORT INFORMATION
  Report Type: 
  Country: None (occurrence: None)
  Receive Date: 20111221
  Receipt Date: 20110909
  Transmission Date: 20120403
  Serious: Yes (Other)
  Sender: FDA-Public Use
  Company Number: 2011S1000069

PATIENT
  Sex: Male

DRUGS (2)
  1. KRYSTEXXA [Suspect]
     Indication: GOUT
     Dosage: 8 MG;X1; IV; X1; IV
     Route: 042
     Dates: start: 20110822, end: 20110822
  2. KRYSTEXXA [Suspect]
     Indication: GOUT
     Dosage: 8 MG;X1; IV; X1; IV
     Route: 042
     Dates: start: 20110908, end: 20110908

REACTIONS (1)
  - INFUSION RELATED REACTION [None]
